FAERS Safety Report 4834582-2 (Version None)
Quarter: 2005Q4

REPORT INFORMATION
  Report Type: 
  Country: None (occurrence: None)
  Receive Date: 20051122
  Receipt Date: 20050415
  Transmission Date: 20060501
  Serious: No
  Sender: FDA-Public Use
  Company Number: US-BRISTOL-MYERS SQUIBB COMPANY-12937512

PATIENT
  Sex: Male

DRUGS (1)
  1. PRAVACHOL [Suspect]
     Route: 048

REACTIONS (1)
  - TINNITUS [None]
